FAERS Safety Report 19029358 (Version 2)
Quarter: 2021Q1

REPORT INFORMATION
  Report Type: Spontaneous
  Country: US (occurrence: US)
  Receive Date: 20210318
  Receipt Date: 20210325
  Transmission Date: 20210420
  Serious: No
  Sender: FDA-Public Use
  Company Number: US-AMGEN-USASP2021040899

PATIENT
  Age: 37 Year
  Sex: Female

DRUGS (2)
  1. NPLATE [Suspect]
     Active Substance: ROMIPLOSTIM
     Indication: IMMUNE THROMBOCYTOPENIA
     Dosage: UNK UNK, QWK
     Route: 065
     Dates: start: 202001, end: 202009
  2. NPLATE [Suspect]
     Active Substance: ROMIPLOSTIM
     Dosage: 10MCG/KG, QWK
     Route: 065

REACTIONS (1)
  - Therapeutic response decreased [Unknown]

NARRATIVE: CASE EVENT DATE: 202009
